FAERS Safety Report 9055145 (Version 3)
Quarter: 2013Q2

REPORT INFORMATION
  Report Type: Report from Study
  Country: US (occurrence: US)
  Receive Date: 20130206
  Receipt Date: 20130429
  Transmission Date: 20140414
  Serious: Yes (Hospitalization, Other)
  Sender: FDA-Public Use
  Company Number: US-JNJFOC-20130117596

PATIENT
  Age: 73 Year
  Sex: Female
  Weight: 124.74 kg

DRUGS (15)
  1. REMICADE [Suspect]
     Indication: RHEUMATOID ARTHRITIS
     Dosage: DOSE REPORTED AS ^6-7 AMPULES^
     Route: 042
     Dates: start: 200912, end: 201108
  2. REMICADE [Suspect]
     Indication: RHEUMATOID ARTHRITIS
     Route: 042
     Dates: start: 20120213
  3. REMICADE [Suspect]
     Indication: RHEUMATOID ARTHRITIS
     Route: 042
     Dates: start: 20120227
  4. LEFLUNOMIDE [Suspect]
     Indication: PRODUCT USED FOR UNKNOWN INDICATION
     Route: 065
     Dates: start: 2011
  5. PREDNISONE [Concomitant]
     Indication: PRODUCT USED FOR UNKNOWN INDICATION
     Dates: start: 201104
  6. METFORMIN [Concomitant]
     Indication: DIABETES MELLITUS
     Route: 048
     Dates: start: 1980
  7. FOLIC ACID [Concomitant]
  8. VITAMIN [Concomitant]
  9. CALCIUM [Concomitant]
  10. ZOCOR [Concomitant]
     Indication: BLOOD CHOLESTEROL INCREASED
     Dates: start: 1980
  11. PREDNISONE [Concomitant]
     Indication: RHEUMATOID ARTHRITIS
     Dates: start: 2011
  12. ARAVA [Concomitant]
     Indication: RHEUMATOID ARTHRITIS
     Dates: start: 2012
  13. METHOTREXATE [Concomitant]
     Route: 065
  14. GLIMEPIRIDE [Concomitant]
     Route: 065
  15. ASPIR-81 [Concomitant]
     Route: 065

REACTIONS (15)
  - Pneumothorax [Unknown]
  - Drug eruption [Recovered/Resolved]
  - Pleural effusion [Unknown]
  - Bronchitis [Unknown]
  - Cholelithiasis [Recovered/Resolved]
  - Weight decreased [Recovering/Resolving]
  - Sepsis [Unknown]
  - Adverse event [Unknown]
  - Drug hypersensitivity [Not Recovered/Not Resolved]
  - Hair growth abnormal [Not Recovered/Not Resolved]
  - Hair disorder [Not Recovered/Not Resolved]
  - Skin disorder [Not Recovered/Not Resolved]
  - Eczema asteatotic [Not Recovered/Not Resolved]
  - Herpes zoster [Recovering/Resolving]
  - Arthralgia [Unknown]
